FAERS Safety Report 5840504-8 (Version None)
Quarter: 2008Q3

REPORT INFORMATION
  Report Type: 
  Country: None (occurrence: None)
  Receive Date: 20080807
  Receipt Date: 20080723
  Transmission Date: 20090109
  Serious: Yes (Other)
  Sender: FDA-Public Use
  Company Number: 220108J08USA

PATIENT
  Age: 14 Year
  Sex: Female
  Weight: 54.9 kg

DRUGS (3)
  1. SAIZEN [Suspect]
     Indication: GROWTH HORMONE DEFICIENCY
     Dosage: 3 MG, 1 IN 1 DAYS, SUBCUTANEOUS
     Route: 058
     Dates: start: 20080514, end: 20080610
  2. SINGULAIR (MONTELUKAST /01362601/) [Concomitant]
  3. OXANDROLONE [Concomitant]

REACTIONS (3)
  - BENIGN INTRACRANIAL HYPERTENSION [None]
  - MACULAR OEDEMA [None]
  - PAPILLOEDEMA [None]
